FAERS Safety Report 11675990 (Version 1)
Quarter: 2015Q4

REPORT INFORMATION
  Report Type: Spontaneous
  Country: PT (occurrence: PT)
  Receive Date: 20151028
  Receipt Date: 20151028
  Transmission Date: 20160304
  Serious: Yes (Life-Threatening, Hospitalization)
  Sender: FDA-Public Use
  Company Number: PT-BAYER-2015-454069

PATIENT
  Age: 42 Year
  Sex: Male
  Weight: 105 kg

DRUGS (2)
  1. ULTRAVIST [Suspect]
     Active Substance: IOPROMIDE
     Indication: COMPUTERISED TOMOGRAM
     Dosage: 120 ML, QD
     Route: 042
     Dates: start: 20151006, end: 20151006
  2. ULTRAVIST [Suspect]
     Active Substance: IOPROMIDE
     Indication: VOCAL CORD PARALYSIS

REACTIONS (8)
  - Cardio-respiratory arrest [Recovered/Resolved]
  - Oxygen saturation decreased [Recovered/Resolved]
  - Laryngeal oedema [Recovered/Resolved]
  - Hypersensitivity [Recovered/Resolved]
  - Urinary incontinence [Recovered/Resolved]
  - Pulmonary oedema [Recovered/Resolved]
  - Hyperaemia [Recovered/Resolved]
  - Anaphylactic shock [Recovered/Resolved]

NARRATIVE: CASE EVENT DATE: 20151006
